FAERS Safety Report 7211541-6 (Version None)
Quarter: 2010Q4

REPORT INFORMATION
  Report Type: 
  Country: None (occurrence: None)
  Receive Date: 20101227
  Receipt Date: 20101214
  Transmission Date: 20110411
  Serious: Yes (Hospitalization)
  Sender: FDA-Public Use
  Company Number: 780496

PATIENT
  Age: 5 Year
  Sex: Male

DRUGS (8)
  1. VINCRISTINE SULFATE [Suspect]
     Indication: T-CELL TYPE ACUTE LEUKAEMIA
     Dosage: INTRAVENOUS
     Route: 042
  2. (METHOTREXATE) [Suspect]
     Indication: T-CELL TYPE ACUTE LEUKAEMIA
     Dosage: INTRATHECAL
     Route: 037
  3. PREDNISOLONE [Suspect]
     Indication: T-CELL TYPE ACUTE LEUKAEMIA
     Dosage: ORAL
     Route: 048
  4. (IMIPENEM) [Suspect]
     Indication: FEBRILE NEUTROPENIA
  5. AMIKACIN [Suspect]
     Indication: FEBRILE NEUTROPENIA
  6. ALLOPURINOL [Concomitant]
  7. (I.V. SOLUTIONS) [Concomitant]
  8. CALCIUM ACETATE [Concomitant]

REACTIONS (21)
  - BLOOD ALBUMIN DECREASED [None]
  - BLOOD SODIUM DECREASED [None]
  - BLOOD URIC ACID INCREASED [None]
  - CONFUSIONAL STATE [None]
  - EPILEPSY [None]
  - FEBRILE NEUTROPENIA [None]
  - HAEMODIALYSIS [None]
  - HAEMOGLOBIN DECREASED [None]
  - HEADACHE [None]
  - HEMIPARESIS [None]
  - HEPATOMEGALY [None]
  - HYPERTENSION [None]
  - INFECTION [None]
  - LETHARGY [None]
  - PLATELET COUNT DECREASED [None]
  - PROTEIN TOTAL DECREASED [None]
  - RENAL FAILURE ACUTE [None]
  - REVERSIBLE POSTERIOR LEUKOENCEPHALOPATHY SYNDROME [None]
  - TUMOUR LYSIS SYNDROME [None]
  - VASOGENIC CEREBRAL OEDEMA [None]
  - VOMITING [None]
